FAERS Safety Report 19513683 (Version 1)
Quarter: 2021Q3

REPORT INFORMATION
  Report Type: Spontaneous
  Country: US (occurrence: US)
  Receive Date: 20210710
  Receipt Date: 20210710
  Transmission Date: 20211014
  Serious: Yes (Other)
  Sender: FDA-Public Use
  Company Number: US-SHILPA MEDICARE LIMITED-SML-US-2021-00858

PATIENT
  Age: 72 Year

DRUGS (2)
  1. DOCETAXEL, UNKNOWN [Suspect]
     Active Substance: DOCETAXEL
     Indication: URINARY TRACT CARCINOMA IN SITU
     Dosage: INDUCTION TREATMENT, SIX WEEKLY INSTILLATIONS
     Route: 061
  2. DOCETAXEL, UNKNOWN [Suspect]
     Active Substance: DOCETAXEL
     Dosage: MAINTENANCE THERAPY: WEEKLY FOR THREE WEEKS AT 3, 6, 12, 18, 24, AND 36 MONTHS FOLLOWING INDUCTION.
     Route: 061

REACTIONS (3)
  - Drug ineffective [Unknown]
  - Disease progression [Unknown]
  - Drug ineffective for unapproved indication [Unknown]
